FAERS Safety Report 7355703-6 (Version None)
Quarter: 2011Q1

REPORT INFORMATION
  Report Type: 
  Country: None (occurrence: None)
  Receive Date: 20110316
  Receipt Date: 20110308
  Transmission Date: 20110831
  Serious: Yes (Other)
  Sender: FDA-Public Use
  Company Number: US-PFIZER INC-2009300765

PATIENT
  Sex: Male

DRUGS (19)
  1. PRISTIQ [Suspect]
     Indication: ANXIETY
     Dosage: 50 MG, 1X/DAY
     Route: 048
     Dates: start: 20081101
  2. EFFEXOR XR [Suspect]
     Indication: DEPRESSION
     Dosage: 37.5 MG, 1X/DAY
  3. SEROQUEL [Suspect]
     Indication: SLEEP APNOEA SYNDROME
     Dosage: UNK
  4. LUNESTA [Suspect]
     Indication: INSOMNIA
     Dosage: 2 MG, 1X/DAY
     Route: 048
     Dates: start: 20100601, end: 20100601
  5. MAGNESIUM CITRATE [Concomitant]
  6. EFFEXOR [Suspect]
     Dosage: UNK
  7. KLONOPIN [Suspect]
     Dosage: UNK
  8. PAXIL [Suspect]
     Dosage: UNK
  9. ATIVAN [Concomitant]
     Dosage: UNK
  10. EFFEXOR XR [Suspect]
     Dosage: 75 MG, 1X/DAY
  11. ZOLOFT [Suspect]
     Indication: ANXIETY
     Dosage: UNK
     Dates: start: 20080601, end: 20081001
  12. EFFEXOR XR [Suspect]
     Indication: ANXIETY
     Dosage: 75-125 MG DAILY
     Route: 048
     Dates: start: 20080901, end: 20081101
  13. EFFEXOR XR [Suspect]
     Dosage: 150 MG, 1X/DAY
  14. LUNESTA [Suspect]
     Dosage: 4 MG, 1X/DAY
     Route: 048
     Dates: start: 20100601
  15. ZYPREXA [Suspect]
     Dosage: UNK
     Dates: start: 20080601, end: 20081001
  16. DEPAKOTE [Concomitant]
  17. MELATONIN [Concomitant]
  18. PRISTIQ [Suspect]
     Indication: DEPRESSION
  19. EFFEXOR XR [Suspect]
     Dosage: 75 MG, 1X/DAY

REACTIONS (11)
  - PSYCHOMOTOR HYPERACTIVITY [None]
  - DRUG INEFFECTIVE [None]
  - RESTLESS LEGS SYNDROME [None]
  - ANXIETY [None]
  - FATIGUE [None]
  - INSOMNIA [None]
  - SOMNOLENCE [None]
  - AKATHISIA [None]
  - RESTLESSNESS [None]
  - DEPENDENCE [None]
  - AGITATION [None]
